FAERS Safety Report 11517820 (Version 2)
Quarter: 2015Q3

REPORT INFORMATION
  Report Type: Spontaneous
  Country: FR (occurrence: FR)
  Receive Date: 20150917
  Receipt Date: 20150930
  Transmission Date: 20151125
  Serious: Yes (Life-Threatening)
  Sender: FDA-Public Use
  Company Number: FR-ASTRAZENECA-2015SE88455

PATIENT
  Age: 17315 Day
  Sex: Female

DRUGS (10)
  1. MOPRAL [Concomitant]
     Active Substance: OMEPRAZOLE SODIUM
  2. XYLOCAINE [Suspect]
     Active Substance: LIDOCAINE HYDROCHLORIDE
     Route: 065
     Dates: start: 20140125, end: 20140125
  3. TRACUTIL [Concomitant]
  4. SUFENTANIL [Suspect]
     Active Substance: SUFENTANIL
     Route: 065
     Dates: start: 20140125, end: 20140125
  5. DIPRIVAN [Suspect]
     Active Substance: PROPOFOL
     Route: 042
     Dates: start: 20140125, end: 20140125
  6. CELOCURINE [Suspect]
     Active Substance: SUCCINYLCHOLINE CHLORIDE
     Route: 042
     Dates: start: 20140125, end: 20140125
  7. MIZOLLEN [Concomitant]
     Active Substance: MIZOLASTINE
     Indication: RHINITIS ALLERGIC
  8. SPASFON [Concomitant]
     Active Substance: PHLOROGLUCINOL
  9. INEXIUM [Suspect]
     Active Substance: ESOMEPRAZOLE
     Route: 048
  10. DEBRIDAT [Concomitant]
     Active Substance: TRIMEBUTINE MALEATE

REACTIONS (2)
  - Anaphylactic shock [Recovered/Resolved]
  - Tryptase [Unknown]

NARRATIVE: CASE EVENT DATE: 20140125
